FAERS Safety Report 6763752-1 (Version None)
Quarter: 2010Q2

REPORT INFORMATION
  Report Type: 
  Country: None (occurrence: None)
  Receive Date: 20100610
  Receipt Date: 20100602
  Transmission Date: 20101027
  Serious: Yes (Hospitalization, Other)
  Sender: FDA-Public Use
  Company Number: CA-ROCHE-320124

PATIENT
  Sex: Female

DRUGS (11)
  1. TRASTUZUMAB [Suspect]
     Dosage: LOADING DOSE - ADMINISTERED ON DAY 1 OF CYCLE 1.
     Route: 042
     Dates: start: 20020405, end: 20020405
  2. TRASTUZUMAB [Suspect]
     Dosage: MAINTENANCE DOSE ADMINISTERED ON DAY 8 + 15 OF CYCLE 1, AND ON DAY 1, 8 + 15 OF SUBSEQUENT +
     Route: 042
     Dates: start: 20020412, end: 20020821
  3. TRASTUZUMAB [Suspect]
     Dosage: ADMINISTERED ON DAY 22 OF CYCLE SIX, ONCE EVERY THREE WEEKS.
     Route: 042
     Dates: start: 20020828, end: 20030326
  4. DOCETAXEL [Suspect]
     Dosage: ADMINISTERED ON DAY 2 OF CYCLE 1, AND THEN ON DAY 1 OF SUBSEQUENT CYCLES.
     Route: 042
     Dates: start: 20020405, end: 20020807
  5. CISPLATIN [Suspect]
     Dosage: ADMINISTERED ON DAY 2 OF CYCLE 1 AND THEN ON DAY 1 OF SUBSEQUENT CYCLES.
     Route: 042
     Dates: start: 20020405, end: 20020807
  6. ONDANSETRON [Concomitant]
  7. POTASSIUM CHLORIDE [Concomitant]
  8. MANNITOL [Concomitant]
  9. DEXAMETHASONE [Concomitant]
  10. DIPHENHYDRAMINE HYDROCHLORIDE [Concomitant]
  11. TAMOXIFEN CITRATE [Concomitant]

REACTIONS (2)
  - ALOPECIA [None]
  - VOMITING [None]
